FAERS Safety Report 7257145-0 (Version None)
Quarter: 2011Q1

REPORT INFORMATION
  Report Type: 
  Country: None (occurrence: None)
  Receive Date: 20110129
  Receipt Date: 20100812
  Transmission Date: 20110831
  Serious: No
  Sender: FDA-Public Use
  Company Number: US-ABBOTT-10P-163-0664591-00

PATIENT
  Sex: Male

DRUGS (2)
  1. UNKNOWN MEDICATION  (NON-ABBOTT) [Suspect]
     Indication: ATTENTION DEFICIT/HYPERACTIVITY DISORDER
  2. HUMIRA [Suspect]
     Indication: CROHN'S DISEASE
     Dosage: UNKNOWN DOSE

REACTIONS (2)
  - PRURITUS [None]
  - FORMICATION [None]
